FAERS Safety Report 22074699 (Version 1)
Quarter: 2023Q1

REPORT INFORMATION
  Report Type: Spontaneous
  Country: US (occurrence: None)
  Receive Date: 20230308
  Receipt Date: 20230308
  Transmission Date: 20230417
  Serious: Yes (Life-Threatening, Hospitalization, Other)
  Sender: FDA-Public Use
  Company Number: None

PATIENT
  Age: 31 Year
  Sex: Male
  Weight: 87.57 kg

DRUGS (3)
  1. TEMOZOLOMIDE [Suspect]
     Active Substance: TEMOZOLOMIDE
     Indication: Brain neoplasm malignant
     Dosage: OTHER FREQUENCY : DAILY W/ RADIATION;?
     Route: 048
     Dates: start: 20230109, end: 20230213
  2. LEVETIRACETAM [Suspect]
     Active Substance: LEVETIRACETAM
     Dates: start: 20221010, end: 20230213
  3. BACTRIM [Suspect]
     Active Substance: SULFAMETHOXAZOLE\TRIMETHOPRIM
     Dates: start: 20221220, end: 20230213

REACTIONS (3)
  - Glioblastoma multiforme [None]
  - Stevens-Johnson syndrome [None]
  - Toxic epidermal necrolysis [None]

NARRATIVE: CASE EVENT DATE: 20230214
